FAERS Safety Report 10674421 (Version 2)
Quarter: 2015Q1

REPORT INFORMATION
  Report Type: Spontaneous
  Country: US (occurrence: US)
  Receive Date: 20141224
  Receipt Date: 20150204
  Transmission Date: 20150720
  Serious: No
  Sender: FDA-Public Use
  Company Number: US-PFIZER INC-2014350899

PATIENT
  Age: 20 Year
  Sex: Female

DRUGS (2)
  1. GABAPENTIN. [Suspect]
     Active Substance: GABAPENTIN
     Indication: SLEEP DISORDER
     Dosage: 3600 MG, DAILY (800 MG AM, 2800 MG PM)
  2. GABAPENTIN. [Suspect]
     Active Substance: GABAPENTIN
     Indication: DISTURBANCE IN ATTENTION

REACTIONS (2)
  - Intentional product misuse [Unknown]
  - Dysphagia [Unknown]
